FAERS Safety Report 7744923-4 (Version None)
Quarter: 2011Q3

REPORT INFORMATION
  Report Type: 
  Country: None (occurrence: None)
  Receive Date: 20110913
  Receipt Date: 20110902
  Transmission Date: 20111222
  Serious: Yes (Hospitalization)
  Sender: FDA-Public Use
  Company Number: US-BIOGENIDEC-2011BI031823

PATIENT
  Age: 55 Year
  Sex: Female

DRUGS (15)
  1. VITAMIN B-12 [Concomitant]
  2. BACLOFEN [Concomitant]
  3. AMANTADINE HCL [Concomitant]
  4. TIZANIDINE HCL [Concomitant]
  5. TYSABRI [Suspect]
     Indication: MULTIPLE SCLEROSIS
     Route: 042
     Dates: start: 20100816, end: 20110720
  6. VESICARE [Concomitant]
  7. CALCIUM CARBONATE [Concomitant]
  8. DIOVAN [Concomitant]
  9. SINGULAIR [Concomitant]
  10. BUSPAR [Concomitant]
  11. DOXAZOSIN MESYLATE [Concomitant]
  12. BUPROPION HCL [Concomitant]
  13. WELCHOL [Concomitant]
  14. AMPYRA [Concomitant]
  15. CYMBALTA [Concomitant]

REACTIONS (6)
  - MULTIPLE SCLEROSIS RELAPSE [None]
  - ACUTE PSYCHOSIS [None]
  - OESOPHAGEAL ULCER [None]
  - ASTHENIA [None]
  - DRUG INEFFECTIVE [None]
  - DEPRESSION [None]
